FAERS Safety Report 13854127 (Version 3)
Quarter: 2018Q3

REPORT INFORMATION
  Report Type: Spontaneous
  Country: CZ (occurrence: CZ)
  Receive Date: 20170810
  Receipt Date: 20180711
  Transmission Date: 20181010
  Serious: Yes (Hospitalization, Disabling, Other)
  Sender: FDA-Public Use
  Company Number: CZ-PFIZER INC-2017337462

PATIENT
  Sex: Female

DRUGS (14)
  1. MIABENE [Concomitant]
     Active Substance: MIANSERIN HYDROCHLORIDE
     Indication: MENTAL DISORDER
     Dosage: WITH 2?3 WEEEKS OVERLAP WITH EUTHYROX, 3 MONTHS OF USE WITHOUT ADVERSE REACTION
  2. FRISIUM [Suspect]
     Active Substance: CLOBAZAM
     Dosage: UNK UNK, AS NEEDED, OCCASIONALY WHEN PROBLEMS ARE PRESENT
     Dates: start: 20140117
  3. VALDOXAN [Suspect]
     Active Substance: AGOMELATINE
     Indication: IRRITABLE BOWEL SYNDROME
     Dosage: UNK
     Dates: start: 20131216, end: 20131227
  4. PANGROL [Suspect]
     Active Substance: PANCRELIPASE
     Indication: ABDOMINAL DISCOMFORT
     Dosage: UNK
     Dates: start: 2013
  5. EUTHYROX [Suspect]
     Active Substance: LEVOTHYROXINE SODIUM
     Indication: THYROID DISORDER
     Dosage: 50 UG, DAILY 1/2?0?0, HALF TABLET MORNING
     Dates: start: 200204, end: 2007
  6. PANCREOLAN FORTE [Suspect]
     Active Substance: DIASTASE\LIPASE\PROTEASE
     Dosage: UNK
  7. PANZYNORM /00014701/ [Suspect]
     Active Substance: PANCRELIPASE
     Dosage: UNK
  8. AMITRIPTYLIN [Suspect]
     Active Substance: AMITRIPTYLINE
     Dosage: ORIGINALY 1X A DAY, THEN LOWERED TO 0.5 DF A DAY THEN 1/4 DF A DAY, THEN DISCONTINUED
     Dates: start: 20140117, end: 20140309
  9. VERAL [Suspect]
     Active Substance: DICLOFENAC SODIUM
     Dosage: UNK
  10. DALACIN [Suspect]
     Active Substance: CLINDAMYCIN
     Indication: DENTAL CARE
     Dosage: UNK
     Dates: start: 2012, end: 2012
  11. HELICID [Suspect]
     Active Substance: OMEPRAZOLE
     Indication: GASTROINTESTINAL PAIN
     Dosage: UNK
     Dates: start: 201311
  12. LETROX [Concomitant]
     Active Substance: LEVOTHYROXINE SODIUM
     Indication: THYROID DISORDER
     Dosage: UNK
     Dates: start: 2007
  13. PROSULPIN [Suspect]
     Active Substance: SULPIRIDE
     Indication: SOMATIC SYMPTOM DISORDER
     Dosage: 1?2 A DAY
     Dates: start: 20131228, end: 20140126
  14. TRITTICO [Concomitant]
     Active Substance: TRAZODONE HYDROCHLORIDE
     Dosage: UNK
     Dates: start: 201405, end: 201405

REACTIONS (13)
  - Feeding disorder [Unknown]
  - Abdominal pain upper [Unknown]
  - Abdominal pain lower [Unknown]
  - Gastrointestinal disorder [Unknown]
  - Lactose intolerance [Unknown]
  - Irritable bowel syndrome [Unknown]
  - Allergic reaction to excipient [None]
  - Medication error [Unknown]
  - Lactose intolerance [Unknown]
  - Abnormal dreams [Recovered/Resolved]
  - Flatulence [Unknown]
  - Abnormal loss of weight [Unknown]
  - Condition aggravated [Unknown]

NARRATIVE: CASE EVENT DATE: 2001
